FAERS Safety Report 16181091 (Version 1)
Quarter: 2019Q2

REPORT INFORMATION
  Report Type: Spontaneous
  Country: US (occurrence: US)
  Receive Date: 20190410
  Receipt Date: 20190410
  Transmission Date: 20190711
  Serious: No
  Sender: FDA-Public Use
  Company Number: US-CELGENEUS-USA-20190402588

PATIENT
  Sex: Male

DRUGS (2)
  1. OTEZLA [Suspect]
     Active Substance: APREMILAST
     Indication: PSORIASIS
     Dosage: MAINTENANCE DOSE
     Route: 048
     Dates: start: 20190313
  2. OTEZLA [Suspect]
     Active Substance: APREMILAST
     Dosage: 60 MILLIGRAM
     Route: 048
     Dates: start: 2019, end: 20190405

REACTIONS (4)
  - Anxiety [Unknown]
  - Ageusia [Unknown]
  - Salivary hypersecretion [Unknown]
  - Depression [Unknown]

NARRATIVE: CASE EVENT DATE: 2019
